FAERS Safety Report 14281595 (Version 3)
Quarter: 2018Q3

REPORT INFORMATION
  Report Type: Spontaneous
  Country: US (occurrence: US)
  Receive Date: 20171213
  Receipt Date: 20180918
  Transmission Date: 20181010
  Serious: No
  Sender: FDA-Public Use
  Company Number: US-PFIZER INC-2017531346

PATIENT
  Age: 70 Year
  Sex: Female
  Weight: 78.2 kg

DRUGS (1)
  1. DESVENLAFAXINE SUCCINATE MONOHYDRATE [Suspect]
     Active Substance: DESVENLAFAXINE SUCCINATE
     Indication: DEPRESSION
     Dosage: 50 MG, 1X/DAY
     Route: 048

REACTIONS (5)
  - Drug ineffective [Unknown]
  - Insomnia [Unknown]
  - Arthropathy [Unknown]
  - Weight increased [Unknown]
  - Headache [Unknown]
